FAERS Safety Report 17263743 (Version 14)
Quarter: 2025Q2

REPORT INFORMATION
  Report Type: Report from Study
  Country: US (occurrence: US)
  Receive Date: 20200113
  Receipt Date: 20250415
  Transmission Date: 20250717
  Serious: Yes (Other)
  Sender: TAKEDA
  Company Number: US-SHIRE-US202000579

PATIENT
  Age: 68 Year
  Sex: Male
  Weight: 98 kg

DRUGS (27)
  1. HUMAN IMMUNOGLOBULIN G [Suspect]
     Active Substance: HUMAN IMMUNOGLOBULIN G
     Indication: Immunodeficiency common variable
     Dosage: 16 GRAM, Q2WEEKS
     Dates: start: 20170420
  2. HUMAN IMMUNOGLOBULIN G [Suspect]
     Active Substance: HUMAN IMMUNOGLOBULIN G
     Dosage: 20 GRAM, Q2WEEKS
  3. HUMAN IMMUNOGLOBULIN G [Suspect]
     Active Substance: HUMAN IMMUNOGLOBULIN G
     Dosage: 20 GRAM, Q2WEEKS
     Dates: start: 20170626
  4. HUMAN IMMUNOGLOBULIN G [Suspect]
     Active Substance: HUMAN IMMUNOGLOBULIN G
     Dosage: UNK UNK, Q2WEEKS
  5. HUMAN IMMUNOGLOBULIN G [Suspect]
     Active Substance: HUMAN IMMUNOGLOBULIN G
     Dosage: 24 GRAM, Q2WEEKS
  6. DIPHENHYDRAMINE [Concomitant]
     Active Substance: DIPHENHYDRAMINE
  7. SYMBICORT [Concomitant]
     Active Substance: BUDESONIDE\FORMOTEROL FUMARATE DIHYDRATE
  8. AMOXICILLIN [Concomitant]
     Active Substance: AMOXICILLIN
     Indication: Pneumonia
  9. AMOXICILLIN [Concomitant]
     Active Substance: AMOXICILLIN
     Indication: Respiratory tract infection
  10. EPINEPHRINE [Concomitant]
     Active Substance: EPINEPHRINE
  11. ALLEGRA [Concomitant]
     Active Substance: FEXOFENADINE HYDROCHLORIDE
  12. ACETAMINOPHEN [Concomitant]
     Active Substance: ACETAMINOPHEN
  13. METFORMIN HYDROCHLORIDE [Concomitant]
     Active Substance: METFORMIN HYDROCHLORIDE
  14. MELOXICAM [Concomitant]
     Active Substance: MELOXICAM
  15. LOSARTAN [Concomitant]
     Active Substance: LOSARTAN
  16. ROSUVASTATIN [Concomitant]
     Active Substance: ROSUVASTATIN
  17. MONTELUKAST [Concomitant]
     Active Substance: MONTELUKAST
  18. LIDOCAINE [Concomitant]
     Active Substance: LIDOCAINE
  19. TRIAMTERENE AND HYDROCHLOROTHIAZIDE [Concomitant]
     Active Substance: HYDROCHLOROTHIAZIDE\TRIAMTERENE
  20. MUCINEX [Concomitant]
     Active Substance: GUAIFENESIN
  21. LOSARTAN POTASSIUM [Concomitant]
     Active Substance: LOSARTAN POTASSIUM
  22. PROAIR HFA [Concomitant]
     Active Substance: ALBUTEROL SULFATE
  23. ROSUVASTATIN CALCIUM [Concomitant]
     Active Substance: ROSUVASTATIN CALCIUM
  24. MONTELUKAST SODIUM [Concomitant]
     Active Substance: MONTELUKAST SODIUM
  25. DIPHENHYDRAMINE HYDROCHLORIDE [Concomitant]
     Active Substance: DIPHENHYDRAMINE HYDROCHLORIDE
  26. UNSPECIFIED INGREDIENT [Concomitant]
     Active Substance: UNSPECIFIED INGREDIENT
  27. ALLEGRA ALLERGY [Concomitant]
     Active Substance: FEXOFENADINE HYDROCHLORIDE

REACTIONS (12)
  - Respiratory tract infection [Unknown]
  - Pneumonia [Unknown]
  - Nasopharyngitis [Unknown]
  - COVID-19 [Unknown]
  - Seasonal allergy [Not Recovered/Not Resolved]
  - Product use issue [Unknown]
  - Product dose omission issue [Unknown]
  - Inappropriate schedule of product administration [Unknown]
  - Product distribution issue [Unknown]
  - Device infusion issue [Unknown]
  - Sinusitis [Unknown]
  - Muscle spasms [Unknown]

NARRATIVE: CASE EVENT DATE: 20191231
